FAERS Safety Report 21943307 (Version 2)
Quarter: 2024Q3

REPORT INFORMATION
  Report Type: Report from Study
  Country: IT (occurrence: IT)
  Receive Date: 20230202
  Receipt Date: 20240715
  Transmission Date: 20241017
  Serious: Yes (Hospitalization)
  Sender: TEVA
  Company Number: None

PATIENT
  Age: 12 Year
  Sex: Male
  Weight: 32 kg

DRUGS (4)
  1. VINCRISTINE [Suspect]
     Active Substance: VINCRISTINE
     Indication: Hodgkin^s disease
     Dosage: VINCRISTINA TEVA ITALY, 1.67 MG/DAY IV ON 7, 14, 23/12/22
     Route: 042
     Dates: start: 20221207, end: 20221223
  2. PREDNISONE [Concomitant]
     Active Substance: PREDNISONE
     Indication: Hodgkin^s disease
     Dosage: 65 MG/DAY (DIVIDED INTO 3 DOSES OF 25 MG + 3 X 5 MG + 25 MG) FROM DAY 07/12 TO DAY 21/12/22, 25 M...
     Route: 048
     Dates: start: 20221207, end: 20221222
  3. ETOPOSIDE [Suspect]
     Active Substance: ETOPOSIDE
     Indication: Hodgkin^s disease
     Dosage: 139 MG/DAY IV FROM 7/12 TO 11/12/22
     Route: 042
     Dates: start: 20221207, end: 20221211
  4. DOXORUBICIN HYDROCHLORIDE [Suspect]
     Active Substance: DOXORUBICIN HYDROCHLORIDE
     Indication: Hodgkin^s disease
     Dosage: DOXORUBICINA ACCORD HEALTHCARE ITALY
     Route: 042
     Dates: start: 20221207, end: 20221223

REACTIONS (1)
  - Febrile neutropenia [Recovered/Resolved]

NARRATIVE: CASE EVENT DATE: 20221221
